FAERS Safety Report 8786358 (Version 1)
Quarter: 2012Q4

REPORT INFORMATION
  Report Type: 
  Country: AU (occurrence: AU)
  Receive Date: 20120914
  Receipt Date: 20120914
  Transmission Date: 20130627
  Serious: Yes (Other)
  Sender: FDA-Public Use
  Company Number: AU-SANOFI-AVENTIS-2012SA065749

PATIENT
  Sex: Female

DRUGS (7)
  1. RIFAMPICIN [Suspect]
     Indication: DRUG USE FOR UNKNOWN INDICATION
     Route: 065
     Dates: start: 20120202
  2. CLARITHROMYCIN [Suspect]
     Indication: DRUG USE FOR UNKNOWN INDICATION
     Route: 065
     Dates: start: 20120202
  3. ETHAMBUTOL [Suspect]
     Indication: DRUG USE FOR UNKNOWN INDICATION
     Route: 048
     Dates: start: 20120202, end: 20120525
  4. GLUCOSAMINE/MINERALS NOS/VITAMINS NOS [Concomitant]
  5. METAMUCIL [Concomitant]
  6. PANADOL [Concomitant]
  7. PANTOPRAZOLE [Concomitant]

REACTIONS (1)
  - Optic neuropathy [Unknown]
